FAERS Safety Report 6825999-5 (Version None)
Quarter: 2010Q3

REPORT INFORMATION
  Report Type: 
  Country: None (occurrence: None)
  Receive Date: 20100709
  Receipt Date: 20100702
  Transmission Date: 20110219
  Serious: Yes (Other)
  Sender: FDA-Public Use
  Company Number: GH-JNJFOC-20100608323

PATIENT
  Sex: Male

DRUGS (2)
  1. LEVAMISOLE [Suspect]
     Indication: ONCHOCERCIASIS
     Dosage: 5TH AND 7TH DAYS OF THE FIRST WEEK
     Route: 065
  2. MEBENDAZOLE [Suspect]
     Indication: ONCHOCERCIASIS
     Route: 048

REACTIONS (3)
  - ARTHRALGIA [None]
  - JOINT EFFUSION [None]
  - OFF LABEL USE [None]
